FAERS Safety Report 20690577 (Version 1)
Quarter: 2022Q2

REPORT INFORMATION
  Report Type: Spontaneous
  Country: US (occurrence: None)
  Receive Date: 20220406
  Receipt Date: 20220406
  Transmission Date: 20220720
  Serious: Yes (Hospitalization)
  Sender: FDA-Public Use
  Company Number: None

PATIENT
  Age: 33 Year
  Sex: Male
  Weight: 70.8 kg

DRUGS (5)
  1. HUMIRA [Suspect]
     Active Substance: ADALIMUMAB
  2. PREDNISONE [Suspect]
     Active Substance: PREDNISONE
  3. APRISO [Concomitant]
     Active Substance: MESALAMINE
  4. CHOLECALCIFEROL [Suspect]
     Active Substance: CHOLECALCIFEROL
  5. AZATHIOPRINE (IMURAN) [Concomitant]

REACTIONS (6)
  - Crohn^s disease [None]
  - Cytomegalovirus test positive [None]
  - Superinfection [None]
  - Colon dysplasia [None]
  - Large intestinal ulcer [None]
  - Rectal ulcer [None]

NARRATIVE: CASE EVENT DATE: 20190723
